FAERS Safety Report 8369029-5 (Version None)
Quarter: 2012Q2

REPORT INFORMATION
  Report Type: 
  Country: None (occurrence: None)
  Receive Date: 20120518
  Receipt Date: 20120516
  Transmission Date: 20120825
  Serious: No
  Sender: FDA-Public Use
  Company Number: US-PFIZER INC-2012119697

PATIENT
  Sex: Female

DRUGS (2)
  1. METHADONE [Concomitant]
     Dosage: UNK
  2. LYRICA [Suspect]
     Indication: FIBROMYALGIA
     Dosage: 150 MG, 1X/DAY
     Route: 048
     Dates: start: 20120201

REACTIONS (3)
  - SOMNOLENCE [None]
  - DISCOMFORT [None]
  - FATIGUE [None]
